FAERS Safety Report 17047515 (Version 1)
Quarter: 2019Q4

REPORT INFORMATION
  Report Type: Spontaneous
  Country: US (occurrence: US)
  Receive Date: 20191119
  Receipt Date: 20191119
  Transmission Date: 20200122
  Serious: No
  Sender: FDA-Public Use
  Company Number: NVSC2019US039363

PATIENT
  Age: 21 Year
  Sex: Female

DRUGS (1)
  1. CALCIUM [Suspect]
     Active Substance: CALCIUM
     Indication: METABOLIC ACIDOSIS
     Dosage: 10 MG, BID
     Route: 042

REACTIONS (1)
  - Treatment failure [Unknown]
